FAERS Safety Report 7260806-0 (Version None)
Quarter: 2011Q1

REPORT INFORMATION
  Report Type: 
  Country: None (occurrence: None)
  Receive Date: 20110130
  Receipt Date: 20101122
  Transmission Date: 20110831
  Serious: No
  Sender: FDA-Public Use
  Company Number: US-ABBOTT-10P-163-0687178-00

PATIENT
  Sex: Female

DRUGS (7)
  1. CALCIUM [Concomitant]
     Indication: MINERAL SUPPLEMENTATION
  2. CENTRUM [Concomitant]
     Indication: VITAMIN SUPPLEMENTATION
  3. VITAMIN D [Concomitant]
     Indication: VITAMIN SUPPLEMENTATION
  4. FISH OIL [Concomitant]
     Indication: MEDICAL DIET
  5. HUMIRA [Suspect]
  6. TUMS [Concomitant]
     Indication: GASTRITIS
     Dosage: 2 HOURS BEFORE DINNER
  7. HUMIRA [Suspect]
     Indication: CROHN'S DISEASE
     Dosage: 160 MG LOADING DOSE
     Route: 058
     Dates: start: 20101029, end: 20101029

REACTIONS (1)
  - NASAL CONGESTION [None]
